FAERS Safety Report 5147843-7 (Version None)
Quarter: 2006Q4

REPORT INFORMATION
  Report Type: 
  Country: None (occurrence: None)
  Receive Date: 20060914
  Receipt Date: 20060621
  Transmission Date: 20070319
  Serious: Yes (Hospitalization)
  Sender: FDA-Public Use
  Company Number: 1-1409213

PATIENT
  Age: 45 Year
  Sex: Female

DRUGS (1)
  1. SULFAMETHOXAZOLE AND TRIMETHOPRIM [Suspect]
     Indication: URINARY TRACT INFECTION
     Dosage: ONE TABLET, TWICE DAILY, ORAL
     Route: 048
     Dates: start: 20041101, end: 20041101

REACTIONS (6)
  - CORNEAL EROSION [None]
  - DACRYOSTENOSIS ACQUIRED [None]
  - DEPRESSION [None]
  - INJURY [None]
  - NEUROPATHY PERIPHERAL [None]
  - STEVENS-JOHNSON SYNDROME [None]
